FAERS Safety Report 15012221 (Version 1)
Quarter: 2018Q2

REPORT INFORMATION
  Report Type: Spontaneous
  Country: FR (occurrence: FR)
  Receive Date: 20180614
  Receipt Date: 20180614
  Transmission Date: 20180711
  Serious: Yes (Hospitalization)
  Sender: FDA-Public Use
  Company Number: FR-TEVA-2018-FR-906455

PATIENT
  Age: 80 Year
  Sex: Female
  Weight: 55.9 kg

DRUGS (2)
  1. AMOXICILLINE BASE [Suspect]
     Active Substance: AMOXICILLIN
     Indication: BRONCHOPNEUMOPATHY
     Route: 048
     Dates: start: 20180123, end: 20180202
  2. TAVANIC [Suspect]
     Active Substance: LEVOFLOXACIN
     Indication: BRONCHOPNEUMOPATHY
     Route: 048
     Dates: start: 20180123, end: 20180202

REACTIONS (2)
  - Lip oedema [Recovered/Resolved]
  - Tongue oedema [Recovered/Resolved]

NARRATIVE: CASE EVENT DATE: 20180202
